FAERS Safety Report 7211143-1 (Version None)
Quarter: 2011Q1

REPORT INFORMATION
  Report Type: 
  Country: None (occurrence: None)
  Receive Date: 20110105
  Receipt Date: 20110104
  Transmission Date: 20110831
  Serious: Yes (Hospitalization)
  Sender: FDA-Public Use
  Company Number: GXKR2011DE00453

PATIENT
  Age: 34 Year
  Sex: Female
  Weight: 81 kg

DRUGS (3)
  1. IBUPROFEN [Concomitant]
  2. PARACETAMOL [Suspect]
     Indication: WOUND COMPLICATION
     Dosage: }2-3 G DAILY
     Dates: start: 20100701, end: 20100812
  3. HOMEOPATIC PREPARATION [Concomitant]

REACTIONS (3)
  - ACUTE HEPATIC FAILURE [None]
  - COAGULOPATHY [None]
  - ENCEPHALOPATHY [None]
